FAERS Safety Report 25675003 (Version 1)
Quarter: 2025Q3

REPORT INFORMATION
  Report Type: Spontaneous
  Country: US (occurrence: US)
  Receive Date: 20250813
  Receipt Date: 20250813
  Transmission Date: 20251020
  Serious: Yes (Other)
  Sender: AMERICAN REGENT
  Company Number: US-AMERICAN REGENT INC-2024003151

PATIENT
  Age: 5 Decade
  Sex: Female

DRUGS (6)
  1. FERRIC CARBOXYMALTOSE [Suspect]
     Active Substance: FERRIC CARBOXYMALTOSE
     Indication: Product used for unknown indication
     Route: 042
     Dates: start: 20240802, end: 20240802
  2. FERRIC CARBOXYMALTOSE [Suspect]
     Active Substance: FERRIC CARBOXYMALTOSE
     Route: 042
     Dates: start: 20240809, end: 20240809
  3. BENADRYL  [DIPHENHYDRAMINE HYDROCHLORIDE] [Concomitant]
     Indication: Premedication
     Route: 065
     Dates: start: 20240802, end: 20240802
  4. BENADRYL  [DIPHENHYDRAMINE HYDROCHLORIDE] [Concomitant]
     Route: 065
     Dates: start: 20240809, end: 20240809
  5. DEXAMETHASONE [Concomitant]
     Active Substance: DEXAMETHASONE
     Indication: Premedication
     Route: 065
     Dates: start: 20240802, end: 20240802
  6. DEXAMETHASONE [Concomitant]
     Active Substance: DEXAMETHASONE
     Route: 065
     Dates: start: 20240809, end: 20240809

REACTIONS (1)
  - Dyspnoea [Unknown]

NARRATIVE: CASE EVENT DATE: 20240809
